FAERS Safety Report 25210028 (Version 2)
Quarter: 2025Q3

REPORT INFORMATION
  Report Type: Spontaneous
  Country: US (occurrence: US)
  Receive Date: 20250417
  Receipt Date: 20250717
  Transmission Date: 20251021
  Serious: Yes (Other)
  Sender: UCB
  Company Number: US-UCBSA-2025022409

PATIENT
  Sex: Male

DRUGS (1)
  1. BIMZELX [Suspect]
     Active Substance: BIMEKIZUMAB-BKZX
     Indication: Ankylosing spondylitis
     Dosage: 160 MILLIGRAM, EV 4 WEEKS
     Route: 058
     Dates: start: 202501

REACTIONS (6)
  - Ankylosing spondylitis [Unknown]
  - Loss of consciousness [Unknown]
  - Dehydration [Unknown]
  - Fatigue [Unknown]
  - Product availability issue [Unknown]
  - Therapy interrupted [Unknown]
